FAERS Safety Report 18694257 (Version 1)
Quarter: 2021Q1

REPORT INFORMATION
  Report Type: Spontaneous
  Country: GB (occurrence: GB)
  Receive Date: 20210104
  Receipt Date: 20210104
  Transmission Date: 20210419
  Serious: No
  Sender: FDA-Public Use
  Company Number: GB-LUPIN PHARMACEUTICALS INC.-2020-09031

PATIENT
  Sex: Female

DRUGS (3)
  1. QUININE [Suspect]
     Active Substance: QUININE
     Indication: DRUG THERAPY
     Dosage: UNK, CONSUMED ALCOHOL (GIN), ONCE A MONTH. USUALLY 1?2 UNITS OF ALCOHOL WITH 200ML OF TONIC WATER CO
     Route: 048
  2. PARACETAMOL [Concomitant]
     Active Substance: ACETAMINOPHEN
     Indication: MIGRAINE
     Dosage: UNK
     Route: 065
  3. IBUPROFEN. [Concomitant]
     Active Substance: IBUPROFEN
     Indication: MIGRAINE
     Dosage: UNK
     Route: 065

REACTIONS (2)
  - Fixed eruption [Recovered/Resolved]
  - Skin hyperpigmentation [Recovered/Resolved]
